FAERS Safety Report 8584882-8 (Version None)
Quarter: 2012Q3

REPORT INFORMATION
  Report Type: 
  Country: None (occurrence: None)
  Receive Date: 20120810
  Receipt Date: 20120727
  Transmission Date: 20120928
  Serious: Yes (Other)
  Sender: FDA-Public Use
  Company Number: US-ELI_LILLY_AND_COMPANY-US201207009232

PATIENT
  Sex: Female

DRUGS (7)
  1. LIPITOR [Concomitant]
  2. BYSTOLIC [Concomitant]
  3. DYAZIDE [Concomitant]
  4. CYMBALTA [Suspect]
     Indication: NEUROPATHY PERIPHERAL
     Dosage: 90 MG, QD
  5. XANAX [Concomitant]
  6. MICRO-K [Concomitant]
  7. HYDROCODONE BITARTRATE [Concomitant]

REACTIONS (6)
  - PAIN [None]
  - ADVERSE EVENT [None]
  - ROTATOR CUFF SYNDROME [None]
  - CONFUSIONAL STATE [None]
  - FALL [None]
  - OFF LABEL USE [None]
